FAERS Safety Report 5735247-5 (Version None)
Quarter: 2008Q2

REPORT INFORMATION
  Report Type: 
  Country: None (occurrence: None)
  Receive Date: 20080512
  Receipt Date: 20080502
  Transmission Date: 20081010
  Serious: Yes (Other)
  Sender: FDA-Public Use
  Company Number: US-GILEAD-2008-0016326

PATIENT
  Sex: Male

DRUGS (2)
  1. TRUVADA [Suspect]
     Indication: HIV INFECTION
  2. TRUVADA [Suspect]
     Indication: HEPATITIS B VIRUS

REACTIONS (2)
  - BLOOD CREATININE INCREASED [None]
  - HEPATITIS [None]
